FAERS Safety Report 10084802 (Version 1)
Quarter: 2014Q2

REPORT INFORMATION
  Report Type: Spontaneous
  Country: US (occurrence: None)
  Receive Date: 20140404
  Receipt Date: 20140404
  Transmission Date: 20141212
  Serious: No
  Sender: FDA-Public Use
  Company Number: 1340338

PATIENT
  Sex: Female

DRUGS (1)
  1. PERJETA [Suspect]
     Indication: HER-2 POSITIVE BREAST CANCER
     Dosage: LOADING DOSE APPROXIMATELY TWO WEEKS AGO

REACTIONS (2)
  - Lip swelling [None]
  - Swelling [None]
